FAERS Safety Report 7595357-7 (Version None)
Quarter: 2011Q3

REPORT INFORMATION
  Report Type: 
  Country: None (occurrence: None)
  Receive Date: 20110707
  Receipt Date: 20110707
  Transmission Date: 20111222
  Serious: Yes (Hospitalization)
  Sender: FDA-Public Use
  Company Number: SV-PFIZER INC-2011147915

PATIENT
  Age: 67 Year
  Sex: Female
  Weight: 51.8 kg

DRUGS (3)
  1. ENZYPRIDE [Concomitant]
     Dosage: UNK
     Dates: start: 20050101
  2. VARENICLINE TARTRATE [Suspect]
     Dosage: 2 MG, 2X/DAY
     Route: 048
     Dates: start: 20110601, end: 20110622
  3. CADUET [Concomitant]
     Dosage: 5 MG, UNK
     Dates: start: 20050101

REACTIONS (1)
  - LUNG NEOPLASM [None]
